FAERS Safety Report 12612930 (Version 1)
Quarter: 2016Q3

REPORT INFORMATION
  Report Type: Spontaneous
  Country: EG (occurrence: EG)
  Receive Date: 20160802
  Receipt Date: 20160802
  Transmission Date: 20161109
  Serious: Yes (Other)
  Sender: FDA-Public Use
  Company Number: EG-ROCHE-1806142

PATIENT
  Sex: Female

DRUGS (2)
  1. XELODA [Suspect]
     Active Substance: CAPECITABINE
     Indication: COLON CANCER
     Route: 065
     Dates: start: 2015
  2. AVASTIN [Suspect]
     Active Substance: BEVACIZUMAB
     Indication: COLON CANCER
     Dosage: 400MG/16ML
     Route: 065
     Dates: start: 2015

REACTIONS (4)
  - Faeces discoloured [Unknown]
  - Abdominal distension [Unknown]
  - Eructation [Unknown]
  - Constipation [Unknown]
